FAERS Safety Report 20812527 (Version 3)
Quarter: 2022Q3

REPORT INFORMATION
  Report Type: Report from Study
  Country: DE (occurrence: DE)
  Receive Date: 20220511
  Receipt Date: 20220908
  Transmission Date: 20221026
  Serious: Yes (Other)
  Sender: FDA-Public Use
  Company Number: DE-LEO Pharma-342559

PATIENT
  Age: 29 Year
  Sex: Male

DRUGS (3)
  1. TRALOKINUMAB [Suspect]
     Active Substance: TRALOKINUMAB
     Indication: Dermatitis atopic
     Dosage: DOSAGE : NO POSOLOGY INFORMATION REPORTED
     Dates: start: 20220208
  2. TRALOKINUMAB [Suspect]
     Active Substance: TRALOKINUMAB
     Indication: Dermatitis atopic
     Dosage: DOSAGE : NO POSOLOGY INFORMATION REPORTED
     Dates: start: 20220208
  3. DEVICE [Suspect]
     Active Substance: DEVICE
     Indication: Dermatitis atopic

REACTIONS (3)
  - Dry mouth [Unknown]
  - Xerophthalmia [Recovered/Resolved]
  - Xerophthalmia [Recovered/Resolved]

NARRATIVE: CASE EVENT DATE: 20220307
